FAERS Safety Report 12625743 (Version 1)
Quarter: 2016Q3

REPORT INFORMATION
  Report Type: Spontaneous
  Country: NL (occurrence: NL)
  Receive Date: 20160805
  Receipt Date: 20160805
  Transmission Date: 20161109
  Serious: Yes (Life-Threatening, Hospitalization)
  Sender: FDA-Public Use
  Company Number: NL-PFIZER INC-2016373292

PATIENT
  Age: 64 Year
  Sex: Female

DRUGS (9)
  1. PANTOPRAZOLE [Suspect]
     Active Substance: PANTOPRAZOLE SODIUM
     Dosage: 40 MG, QD
     Route: 048
     Dates: start: 2006, end: 20160721
  2. ATORVASTATINE [Concomitant]
     Active Substance: ATORVASTATIN
     Dosage: 40 MG, QD
     Route: 048
  3. ACETYLSALICYLZUUR [Concomitant]
     Active Substance: ASPIRIN
     Dosage: 80 MG, QD
     Route: 048
  4. BUMETANIDE. [Concomitant]
     Active Substance: BUMETANIDE
     Dosage: 2 MG, QD
     Route: 048
  5. CALCI CHEW [Concomitant]
     Dosage: 500 MG, QD
     Route: 048
  6. ALLOPURINOL. [Concomitant]
     Active Substance: ALLOPURINOL
     Dosage: 300 MG, QD
     Route: 048
  7. CARVEDILOL. [Concomitant]
     Active Substance: CARVEDILOL
     Dosage: 6.25 MG, QD
     Route: 048
  8. FOSINOPRIL [Concomitant]
     Active Substance: FOSINOPRIL
     Dosage: 10 MG, QD
     Route: 048
  9. SPIRONOLACTON [Concomitant]
     Active Substance: SPIRONOLACTONE
     Dosage: 25 MG, QD
     Route: 048

REACTIONS (2)
  - Hypocalcaemia [Recovering/Resolving]
  - Hypomagnesaemia [Recovering/Resolving]

NARRATIVE: CASE EVENT DATE: 20160721
